FAERS Safety Report 9910082 (Version 1)
Quarter: 2014Q1

REPORT INFORMATION
  Report Type: Spontaneous
  Country: US (occurrence: None)
  Receive Date: 20140212
  Receipt Date: 20140212
  Transmission Date: 20141002
  Serious: Yes (Death)
  Sender: FDA-Public Use
  Company Number: 2014020126

PATIENT
  Age: 18 Year
  Sex: Female

DRUGS (2)
  1. ACETAMINOPHEN/PHENYLEPHRINE [Suspect]
  2. ACETAMINOPHEN/HYDROCODONE [Suspect]

REACTIONS (1)
  - Completed suicide [None]
